FAERS Safety Report 5486633-2 (Version None)
Quarter: 2007Q4

REPORT INFORMATION
  Report Type: 
  Country: None (occurrence: None)
  Receive Date: 20071016
  Receipt Date: 20071009
  Transmission Date: 20080405
  Serious: Yes (Death, Hospitalization, Other)
  Sender: FDA-Public Use
  Company Number: JP-AVENTIS-200712165JP

PATIENT
  Sex: Female

DRUGS (9)
  1. TAXOTERE [Suspect]
     Route: 041
     Dates: start: 20070729, end: 20070729
  2. VOLTAREN [Concomitant]
  3. FAMOTIDINE [Concomitant]
  4. NOVAMIN                            /00013301/ [Concomitant]
  5. OXYCONTIN [Concomitant]
  6. MAGMITT [Concomitant]
  7. PARAPLATIN [Concomitant]
  8. MUCOSTA [Concomitant]
  9. OMEPRAL [Concomitant]

REACTIONS (3)
  - DIZZINESS [None]
  - LUNG NEOPLASM MALIGNANT [None]
  - SPEECH DISORDER [None]
